FAERS Safety Report 5767005-X (Version None)
Quarter: 2008Q2

REPORT INFORMATION
  Report Type: 
  Country: None (occurrence: None)
  Receive Date: 20080609
  Receipt Date: 20080527
  Transmission Date: 20081010
  Serious: Yes (Life-Threatening, Hospitalization, Disabling)
  Sender: FDA-Public Use
  Company Number: 001117

PATIENT
  Age: 42 Year
  Sex: Male

DRUGS (7)
  1. BUSULFEX [Suspect]
     Indication: STEM CELL TRANSPLANT
     Dosage: 36 ML
     Route: 042
     Dates: start: 20071019, end: 20071022
  2. PHENYTOIN [Concomitant]
  3. NEUPOGEN [Concomitant]
  4. METHOTREXATE [Concomitant]
  5. TACROLIMUS [Concomitant]
  6. PREDNISOLONE [Concomitant]
  7. CYCLOPHOSPHAMIDE [Concomitant]

REACTIONS (11)
  - ANOREXIA [None]
  - CYTOMEGALOVIRUS VIRAEMIA [None]
  - DIARRHOEA [None]
  - ENCEPHALITIS VIRAL [None]
  - FEBRILE NEUTROPENIA [None]
  - GRAFT VERSUS HOST DISEASE [None]
  - HUMAN HERPESVIRUS 6 INFECTION [None]
  - NAUSEA [None]
  - SEPSIS [None]
  - STOMATITIS [None]
  - VOMITING [None]
